FAERS Safety Report 14342173 (Version 1)
Quarter: 2018Q1

REPORT INFORMATION
  Report Type: Spontaneous
  Country: US (occurrence: US)
  Receive Date: 20180102
  Receipt Date: 20180102
  Transmission Date: 20180509
  Serious: No
  Sender: FDA-Public Use
  Company Number: US-TEVA-821913ACC

PATIENT
  Sex: Male

DRUGS (1)
  1. MINOXIDIL TOPICAL SOLUTION FOR MEN [Suspect]
     Active Substance: MINOXIDIL
     Indication: ALOPECIA
     Dosage: FORM: TOPICAL SOLUTION
     Dates: start: 20171024, end: 20171030

REACTIONS (1)
  - Joint swelling [Unknown]

NARRATIVE: CASE EVENT DATE: 20171030
